FAERS Safety Report 26151249 (Version 1)
Quarter: 2025Q4

REPORT INFORMATION
  Report Type: Spontaneous
  Country: US (occurrence: None)
  Receive Date: 20251211
  Receipt Date: 20251211
  Transmission Date: 20260118
  Serious: Yes (unspecified)
  Sender: FDA-CTU
  Company Number: None

PATIENT
  Age: 43 Year
  Sex: Female
  Weight: 102.15 kg

DRUGS (1)
  1. MONOFERRIC [Suspect]
     Active Substance: FERRIC DERISOMALTOSE
     Indication: Iron deficiency anaemia
     Dates: start: 20251208, end: 20251209

REACTIONS (1)
  - Pharyngeal swelling [None]

NARRATIVE: CASE EVENT DATE: 20251208
